FAERS Safety Report 8270575-3 (Version None)
Quarter: 2012Q2

REPORT INFORMATION
  Report Type: 
  Country: None (occurrence: None)
  Receive Date: 20120410
  Receipt Date: 20120402
  Transmission Date: 20120825
  Serious: Yes (Hospitalization)
  Sender: FDA-Public Use
  Company Number: AT-MEDIMMUNE-MEDI-0015385

PATIENT
  Sex: Male
  Weight: 3.2 kg

DRUGS (2)
  1. SYNAGIS [Suspect]
     Route: 030
  2. PROTOVIT [Concomitant]

REACTIONS (2)
  - BRADYCARDIA [None]
  - APNOEA [None]
